FAERS Safety Report 6629525-5 (Version None)
Quarter: 2010Q1

REPORT INFORMATION
  Report Type: 
  Country: None (occurrence: None)
  Receive Date: 20100311
  Receipt Date: 20090723
  Transmission Date: 20100710
  Serious: No
  Sender: FDA-Public Use
  Company Number: US-BIOGENIDEC-2009BI022823

PATIENT
  Sex: Female

DRUGS (6)
  1. AVONEX [Suspect]
     Indication: MULTIPLE SCLEROSIS
     Route: 030
     Dates: start: 19990101, end: 20030101
  2. AVONEX [Suspect]
     Route: 030
     Dates: start: 20030101
  3. PULMICORT [Concomitant]
     Indication: ASTHMA
  4. ALBUTEROL [Concomitant]
     Indication: ASTHMA
  5. NASONEX [Concomitant]
     Indication: ASTHMA
  6. NASACORT [Concomitant]
     Indication: ASTHMA

REACTIONS (3)
  - ASTHMA [None]
  - FATIGUE [None]
  - WHEEZING [None]
